FAERS Safety Report 7897135-8 (Version None)
Quarter: 2011Q4

REPORT INFORMATION
  Report Type: 
  Country: None (occurrence: None)
  Receive Date: 20111028
  Receipt Date: 20111028
  Transmission Date: 20120403
  Serious: Yes (Hospitalization)
  Sender: FDA-Public Use
  Company Number: SPV1-2011-00634

PATIENT
  Age: 4 Year
  Sex: Male

DRUGS (2)
  1. INTUNIV [Suspect]
     Indication: ATTENTION DEFICIT/HYPERACTIVITY DISORDER
     Dosage: 2 MG 1X/DAY: QD ORAL; 1 MG 1X/DAY: QD ORAL
     Route: 048
     Dates: start: 20110101, end: 20110101
  2. INTUNIV [Suspect]
     Indication: ATTENTION DEFICIT/HYPERACTIVITY DISORDER
     Dosage: 2 MG 1X/DAY: QD ORAL; 1 MG 1X/DAY: QD ORAL
     Route: 048
     Dates: start: 20110101, end: 20110401

REACTIONS (3)
  - HYPOTENSION [None]
  - SINUS BRADYCARDIA [None]
  - OFF LABEL USE [None]
